FAERS Safety Report 4407212-1 (Version None)
Quarter: 2004Q3

REPORT INFORMATION
  Report Type: 
  Country: None (occurrence: None)
  Receive Date: 20040721
  Receipt Date: 20040630
  Transmission Date: 20050211
  Serious: Yes (Hospitalization, Other)
  Sender: FDA-Public Use
  Company Number: US_981214087

PATIENT
  Age: 46 Year
  Sex: Female

DRUGS (8)
  1. HUMULIN L [Suspect]
     Indication: DIABETES MELLITUS
     Dosage: 29 U DAY
     Dates: start: 19980101, end: 20030401
  2. HUMULIN R [Suspect]
     Indication: DIABETES MELLITUS
     Dosage: 5 U DAY
     Dates: start: 19981101, end: 20030401
  3. HUMALOG [Suspect]
     Indication: DIABETES MELLITUS
     Dates: start: 20030401
  4. LANTUS [Concomitant]
  5. LIPITOR [Concomitant]
  6. LOPRESSOR [Concomitant]
  7. FOLIC ACID [Concomitant]
  8. ASPIRIN [Concomitant]

REACTIONS (8)
  - BLOOD GLUCOSE DECREASED [None]
  - BLOOD GLUCOSE INCREASED [None]
  - BLOOD KETONE BODY PRESENT [None]
  - DIABETES MELLITUS INADEQUATE CONTROL [None]
  - EPISTAXIS [None]
  - HEADACHE [None]
  - PHARMACEUTICAL PRODUCT COMPLAINT [None]
  - QUADRUPLE VESSEL BYPASS GRAFT [None]
